FAERS Safety Report 5505880-4 (Version None)
Quarter: 2007Q4

REPORT INFORMATION
  Report Type: 
  Country: None (occurrence: None)
  Receive Date: 20071102
  Receipt Date: 20071024
  Transmission Date: 20080405
  Serious: Yes (Other)
  Sender: FDA-Public Use
  Company Number: US-PFIZER INC-2007090130

PATIENT
  Age: 72 Year
  Sex: Female
  Weight: 68 kg

DRUGS (2)
  1. NICOTINE [Suspect]
     Indication: SMOKING CESSATION THERAPY
     Route: 055
  2. ANTIDEPRESSANTS [Concomitant]

REACTIONS (4)
  - DRUG DEPENDENCE [None]
  - RASH [None]
  - SWELLING [None]
  - URTICARIA [None]
